FAERS Safety Report 6382546-2 (Version None)
Quarter: 2009Q3

REPORT INFORMATION
  Report Type: 
  Country: None (occurrence: None)
  Receive Date: 20090930
  Receipt Date: 20090922
  Transmission Date: 20100115
  Serious: Yes (Hospitalization)
  Sender: FDA-Public Use
  Company Number: A0808371A

PATIENT
  Age: 46 Year
  Sex: Female
  Weight: 102.7 kg

DRUGS (8)
  1. AVANDIA [Suspect]
     Dosage: 8MG PER DAY
     Route: 065
     Dates: start: 20011001, end: 20040201
  2. HYDROCHLOROTHIAZIDE [Concomitant]
  3. ZETIA [Concomitant]
  4. DILTIAZEM [Concomitant]
  5. METFORMIN HYDROCHLORIDE [Concomitant]
  6. K DUR [Concomitant]
  7. GLIPIZIDE [Concomitant]
  8. LASIX [Concomitant]

REACTIONS (4)
  - CARDIAC FAILURE CONGESTIVE [None]
  - CARDIOGENIC SHOCK [None]
  - MYOCARDIAL INFARCTION [None]
  - VENTRICULAR FIBRILLATION [None]
